FAERS Safety Report 15773212 (Version 2)
Quarter: 2018Q4

REPORT INFORMATION
  Report Type: Report from Study
  Country: US (occurrence: US)
  Receive Date: 20181228
  Receipt Date: 20181228
  Transmission Date: 20190205
  Serious: Yes (Hospitalization, Other)
  Sender: FDA-Public Use
  Company Number: PHEH2018US054686

PATIENT
  Age: 60 Year
  Sex: Male

DRUGS (2)
  1. ENTRESTO [Suspect]
     Active Substance: SACUBITRIL\VALSARTAN
     Indication: CARDIAC FAILURE
     Dosage: 1 DF(49 MG SACUBITRIL, 51 MG VALSARTAN), BID
     Route: 048
     Dates: start: 201607
  2. CARVEDILOL. [Suspect]
     Active Substance: CARVEDILOL
     Indication: PRODUCT USED FOR UNKNOWN INDICATION
     Route: 065

REACTIONS (11)
  - Fatigue [Unknown]
  - Memory impairment [Unknown]
  - Hypoaesthesia [Unknown]
  - Asthenia [Unknown]
  - Blood pressure abnormal [Unknown]
  - Hypotension [Unknown]
  - Ejection fraction decreased [Unknown]
  - Loss of consciousness [Unknown]
  - Alopecia [Unknown]
  - Dehydration [Unknown]
  - Face injury [Unknown]

NARRATIVE: CASE EVENT DATE: 20170704
